FAERS Safety Report 19110559 (Version 2)
Quarter: 2021Q2

REPORT INFORMATION
  Report Type: Report from Study
  Country: US (occurrence: US)
  Receive Date: 20210409
  Receipt Date: 20210616
  Transmission Date: 20210717
  Serious: No
  Sender: FDA-Public Use
  Company Number: US-BIOVITRUM-2021US2559

PATIENT
  Age: 55 Year
  Sex: Female

DRUGS (1)
  1. KINERET [Suspect]
     Active Substance: ANAKINRA
     Indication: PERICARDIAL EFFUSION
     Route: 058
     Dates: start: 20210303

REACTIONS (17)
  - Muscular weakness [Unknown]
  - Injection site erythema [Unknown]
  - Peripheral swelling [Unknown]
  - Pain in extremity [Unknown]
  - Fall [Unknown]
  - Injection site pain [Unknown]
  - Paraesthesia [Unknown]
  - Dizziness [Unknown]
  - Injection site pruritus [Unknown]
  - Injection site warmth [Unknown]
  - Rash macular [Unknown]
  - Injection site rash [Unknown]
  - Product use complaint [Unknown]
  - Off label use [Unknown]
  - Irritability [Unknown]
  - Injection site reaction [Recovering/Resolving]
  - Injection site bruising [Unknown]

NARRATIVE: CASE EVENT DATE: 20210303
